FAERS Safety Report 10431461 (Version 3)
Quarter: 2014Q4

REPORT INFORMATION
  Report Type: Spontaneous
  Country: DE (occurrence: DE)
  Receive Date: 20140904
  Receipt Date: 20141021
  Transmission Date: 20150528
  Serious: Yes (Death, Hospitalization, Other)
  Sender: FDA-Public Use
  Company Number: DE-TAKEDA-2014JNJ005116

PATIENT

DRUGS (2)
  1. TEMSIROLIMUS [Suspect]
     Active Substance: TEMSIROLIMUS
     Indication: PRODUCT USED FOR UNKNOWN INDICATION
     Dosage: UNK
     Route: 065
     Dates: start: 201401, end: 201404
  2. VELCADE [Suspect]
     Active Substance: BORTEZOMIB
     Indication: MANTLE CELL LYMPHOMA STAGE IV
     Dosage: UNK
     Route: 065
     Dates: start: 201312, end: 201401

REACTIONS (14)
  - Epistaxis [Unknown]
  - Pancytopenia [Fatal]
  - Oral herpes [Unknown]
  - Pyrexia [Unknown]
  - Product use issue [Unknown]
  - Hypertriglyceridaemia [Unknown]
  - Hypertension [Unknown]
  - Mantle cell lymphoma [Fatal]
  - Cardiac failure [Unknown]
  - Hypercholesterolaemia [Unknown]
  - Pneumonia fungal [Unknown]
  - Hypocalcaemia [Unknown]
  - Type 2 diabetes mellitus [Unknown]
  - Oral candidiasis [Unknown]
